FAERS Safety Report 17450998 (Version 1)
Quarter: 2020Q1

REPORT INFORMATION
  Report Type: Spontaneous
  Country: US (occurrence: US)
  Receive Date: 20200219
  Receipt Date: 20200219
  Transmission Date: 20200409
  Serious: Yes (Hospitalization)
  Sender: FDA-Public Use
  Company Number: None

PATIENT
  Age: 30 Year
  Sex: Female
  Weight: 87.6 kg

DRUGS (1)
  1. DULOXETINE (DULOXETINE HCL 30MG CAP, ORAL) [Suspect]
     Active Substance: DULOXETINE
     Indication: DEPRESSION
     Route: 048
     Dates: start: 20160125, end: 20181109

REACTIONS (2)
  - Symptom recurrence [None]
  - Serotonin syndrome [None]

NARRATIVE: CASE EVENT DATE: 20181108
